FAERS Safety Report 19463743 (Version 1)
Quarter: 2021Q2

REPORT INFORMATION
  Report Type: Spontaneous
  Country: US (occurrence: US)
  Receive Date: 20210625
  Receipt Date: 20210625
  Transmission Date: 20210717
  Serious: No
  Sender: FDA-Public Use
  Company Number: US-009507513-2106USA004334

PATIENT
  Age: 67 Year
  Sex: Male

DRUGS (1)
  1. PRIMAXIN IV [Suspect]
     Active Substance: CILASTATIN SODIUM\IMIPENEM
     Indication: CAMPYLOBACTER INFECTION
     Dosage: 1000 MILLIGRAM, Q8H
     Route: 042

REACTIONS (1)
  - Off label use [Unknown]
